FAERS Safety Report 5063990-2 (Version None)
Quarter: 2006Q3

REPORT INFORMATION
  Report Type: 
  Country: None (occurrence: None)
  Receive Date: 20060703
  Receipt Date: 20050926
  Transmission Date: 20061208
  Serious: No
  Sender: FDA-Public Use
  Company Number: 2005S1009653

PATIENT
  Age: 52 Year
  Sex: Female
  Weight: 98.4306 kg

DRUGS (11)
  1. CLOZAPINE [Suspect]
     Indication: PSYCHOTIC DISORDER
     Dosage: 200 MG;BID;ORAL
     Route: 048
     Dates: start: 20050921, end: 20051005
  2. CLOZAPINE [Suspect]
     Indication: SCHIZOPHRENIA
     Dosage: 200 MG;BID;ORAL
     Route: 048
     Dates: start: 20050921, end: 20051005
  3. ATORVASTATIN CALCIUM [Concomitant]
  4. BENZTROPINE MESYLATE [Concomitant]
  5. HALOPERIDOL [Concomitant]
  6. NAPROXEN [Concomitant]
  7. TRAZODONE HCL [Concomitant]
  8. RANITIDINE HYDROCHLORIDE [Concomitant]
  9. FLUCONAZOLE [Concomitant]
  10. SULFAMETHOXAZOLE + TRIMETHOPRIM [Concomitant]
  11. HYDROXYZINE EMBONATE [Concomitant]

REACTIONS (1)
  - GRANULOCYTOPENIA [None]
